FAERS Safety Report 6494665-0 (Version None)
Quarter: 2009Q4

REPORT INFORMATION
  Report Type: 
  Country: None (occurrence: None)
  Receive Date: 20091214
  Receipt Date: 20090313
  Transmission Date: 20100525
  Serious: No
  Sender: FDA-Public Use
  Company Number: US-BRISTOL-MYERS SQUIBB COMPANY-14542781

PATIENT
  Age: 63 Year
  Sex: Male
  Weight: 103 kg

DRUGS (4)
  1. ABILIFY [Suspect]
     Indication: BIPOLAR DISORDER
  2. PAXIL [Suspect]
  3. DEPAKOTE [Concomitant]
  4. HYDROCHLOROTHIAZIDE [Concomitant]

REACTIONS (3)
  - RASH [None]
  - TREMOR [None]
  - URTICARIA [None]
